FAERS Safety Report 23495735 (Version 1)
Quarter: 2024Q1

REPORT INFORMATION
  Report Type: Spontaneous
  Country: US (occurrence: US)
  Receive Date: 20240207
  Receipt Date: 20240207
  Transmission Date: 20240410
  Serious: No
  Sender: FDA-Public Use
  Company Number: US-PFIZER INC-202400035106

PATIENT
  Age: 70 Year
  Sex: Male

DRUGS (11)
  1. INLYTA [Suspect]
     Active Substance: AXITINIB
     Dosage: 5 MG, 2X/DAY
     Route: 048
     Dates: start: 202210
  2. EVEROLIMUS [Concomitant]
     Active Substance: EVEROLIMUS
  3. PREDNISONE [Concomitant]
     Active Substance: PREDNISONE
  4. FAMOTIDINE [Concomitant]
     Active Substance: FAMOTIDINE
  5. TRAMADOL [Concomitant]
     Active Substance: TRAMADOL\TRAMADOL HYDROCHLORIDE
  6. KEYTRUDA [Concomitant]
     Active Substance: PEMBROLIZUMAB
  7. LEVOTHYROXINE [Concomitant]
     Active Substance: LEVOTHYROXINE\LEVOTHYROXINE SODIUM
  8. DOXYCYCLINE HYCLATE [Concomitant]
     Active Substance: DOXYCYCLINE HYCLATE
  9. ATORVASTATIN CALCIUM [Concomitant]
     Active Substance: ATORVASTATIN CALCIUM
  10. LENVIMA [Concomitant]
     Active Substance: LENVATINIB
  11. IRON [Concomitant]
     Active Substance: IRON

REACTIONS (3)
  - Insomnia [Recovering/Resolving]
  - Decreased appetite [Recovering/Resolving]
  - Malaise [Recovered/Resolved]
